FAERS Safety Report 11452216 (Version 4)
Quarter: 2016Q4

REPORT INFORMATION
  Report Type: Report from Study
  Country: US (occurrence: US)
  Receive Date: 20150903
  Receipt Date: 20161207
  Transmission Date: 20170206
  Serious: No
  Sender: FDA-Public Use
  Company Number: PHEH2015US017092

PATIENT
  Age: 64 Year
  Sex: Female

DRUGS (2)
  1. GILENYA [Suspect]
     Active Substance: FINGOLIMOD HYDROCHLORIDE
     Indication: MULTIPLE SCLEROSIS
     Dosage: 0.5 MG, QD
     Route: 048
     Dates: start: 20120504
  2. VITAMIN D [Concomitant]
     Active Substance: CHOLECALCIFEROL
     Indication: VITAMIN D DEFICIENCY
     Dosage: UNK
     Route: 065

REACTIONS (19)
  - Lymphocyte count decreased [Unknown]
  - Central nervous system lesion [Unknown]
  - Fall [Unknown]
  - Urinary incontinence [Recovering/Resolving]
  - Emotional distress [Unknown]
  - Amnesia [Unknown]
  - Muscle tightness [Recovering/Resolving]
  - Depressed mood [Unknown]
  - Arthralgia [Unknown]
  - White blood cell count decreased [Unknown]
  - Pain in extremity [Not Recovered/Not Resolved]
  - Vision blurred [Unknown]
  - Persistent depressive disorder [Recovered/Resolved]
  - Fasciitis [Unknown]
  - Fatigue [Recovering/Resolving]
  - Stress [Unknown]
  - Malaise [Unknown]
  - Gait disturbance [Unknown]
  - Anxiety [Unknown]

NARRATIVE: CASE EVENT DATE: 201602
